FAERS Safety Report 17360504 (Version 3)
Quarter: 2020Q2

REPORT INFORMATION
  Report Type: Spontaneous
  Country: None (occurrence: PL)
  Receive Date: 20200203
  Receipt Date: 20200428
  Transmission Date: 20200713
  Serious: Yes (Death, Other)
  Sender: FDA-Public Use
  Company Number: PL-ORION CORPORATION ORION PHARMA-20_00008384

PATIENT
  Age: 12 Month
  Sex: Male

DRUGS (8)
  1. TAMOXIFEN [Suspect]
     Active Substance: TAMOXIFEN
     Indication: DESMOID TUMOUR
     Route: 065
  2. CYCLOPHOSPHAMIDE. [Suspect]
     Active Substance: CYCLOPHOSPHAMIDE
     Indication: FIBROMATOSIS
     Route: 065
  3. METHOTREXATE. [Suspect]
     Active Substance: METHOTREXATE
     Indication: DESMOID TUMOUR
     Route: 065
  4. IMATINIB. [Suspect]
     Active Substance: IMATINIB MESYLATE
     Indication: DESMOID TUMOUR
     Route: 065
  5. VINBLASTIN [Suspect]
     Active Substance: VINBLASTINE
     Indication: DESMOID TUMOUR
     Route: 065
  6. DACTINOMYCIN [Suspect]
     Active Substance: DACTINOMYCIN
     Indication: FIBROMATOSIS
     Route: 065
  7. IFOSFAMIDE. [Suspect]
     Active Substance: IFOSFAMIDE
     Indication: FIBROMATOSIS
     Route: 065
  8. DICLOFENAC [Suspect]
     Active Substance: DICLOFENAC
     Indication: DESMOID TUMOUR
     Route: 065

REACTIONS (4)
  - Product use in unapproved indication [Unknown]
  - Desmoid tumour [Fatal]
  - Drug ineffective for unapproved indication [Unknown]
  - Drug resistance [Unknown]
